FAERS Safety Report 12887850 (Version 13)
Quarter: 2017Q3

REPORT INFORMATION
  Report Type: Spontaneous
  Country: CA (occurrence: CA)
  Receive Date: 20161027
  Receipt Date: 20170831
  Transmission Date: 20171127
  Serious: Yes (Other)
  Sender: FDA-Public Use
  Company Number: CA-ROCHE-1845512

PATIENT
  Age: 71 Year
  Sex: Female

DRUGS (15)
  1. XOLAIR [Suspect]
     Active Substance: OMALIZUMAB
     Route: 058
     Dates: start: 20170511
  2. XOLAIR [Suspect]
     Active Substance: OMALIZUMAB
     Route: 058
  3. XOLAIR [Suspect]
     Active Substance: OMALIZUMAB
     Route: 058
     Dates: start: 20170608
  4. METFORMIN [Concomitant]
     Active Substance: METFORMIN HYDROCHLORIDE
     Indication: PRODUCT USED FOR UNKNOWN INDICATION
     Route: 065
  5. XOLAIR [Suspect]
     Active Substance: OMALIZUMAB
     Route: 058
     Dates: start: 20160908, end: 20160908
  6. XOLAIR [Suspect]
     Active Substance: OMALIZUMAB
     Route: 058
     Dates: start: 20160908
  7. XOLAIR [Suspect]
     Active Substance: OMALIZUMAB
     Route: 058
     Dates: start: 20170223
  8. XOLAIR [Suspect]
     Active Substance: OMALIZUMAB
     Route: 058
     Dates: start: 20170706
  9. XOLAIR [Suspect]
     Active Substance: OMALIZUMAB
     Route: 058
     Dates: start: 20161222
  10. XOLAIR [Suspect]
     Active Substance: OMALIZUMAB
     Route: 058
     Dates: start: 20170119
  11. XOLAIR [Suspect]
     Active Substance: OMALIZUMAB
     Dosage: UNK
     Route: 058
     Dates: start: 20161027
  12. MONOSODIUM GLUTAMATE [Suspect]
     Active Substance: MONOSODIUM GLUTAMATE
     Indication: PRODUCT USED FOR UNKNOWN INDICATION
     Route: 065
  13. XOLAIR [Suspect]
     Active Substance: OMALIZUMAB
     Indication: CHRONIC SPONTANEOUS URTICARIA
     Route: 058
     Dates: start: 20140825
  14. ZYRTEC [Concomitant]
     Active Substance: CETIRIZINE HYDROCHLORIDE
     Indication: ANGIOEDEMA
     Dosage: PRN
     Route: 048
  15. XOLAIR [Suspect]
     Active Substance: OMALIZUMAB
     Route: 058
     Dates: start: 20170803

REACTIONS (41)
  - Gait disturbance [Unknown]
  - Infection [Unknown]
  - Asthenia [Unknown]
  - Throat tightness [Unknown]
  - Scar [Recovering/Resolving]
  - Anxiety [Unknown]
  - Algophobia [Unknown]
  - Blood pressure increased [Unknown]
  - Paraesthesia oral [Recovered/Resolved]
  - Paraesthesia oral [Recovered/Resolved]
  - Middle insomnia [Unknown]
  - Allergic cough [Recovered/Resolved]
  - Hypertension [Unknown]
  - Swollen tongue [Unknown]
  - Angioedema [Recovered/Resolved]
  - Angioedema [Recovered/Resolved]
  - Diarrhoea [Unknown]
  - Ear disorder [Unknown]
  - Fear of injection [Unknown]
  - Feeling abnormal [Recovered/Resolved]
  - Bedridden [Unknown]
  - Swelling [Recovered/Resolved]
  - Tongue pruritus [Unknown]
  - Abdominal pain upper [Unknown]
  - Stress [Unknown]
  - Hyperaesthesia [Unknown]
  - Injection site discomfort [Unknown]
  - Paraesthesia [Unknown]
  - Influenza [Unknown]
  - Pruritus [Unknown]
  - Glossitis [Unknown]
  - Cholelithiasis [Recovering/Resolving]
  - Inappropriate schedule of drug administration [Unknown]
  - Hypersensitivity [Unknown]
  - Swelling face [Recovered/Resolved]
  - Renal failure [Unknown]
  - Diabetic foot [Unknown]
  - Speech disorder [Unknown]
  - Dizziness [Unknown]
  - Oedema peripheral [Unknown]
  - Malaise [Unknown]

NARRATIVE: CASE EVENT DATE: 20140825
